FAERS Safety Report 12896701 (Version 2)
Quarter: 2016Q4

REPORT INFORMATION
  Report Type: Spontaneous
  Country: CN (occurrence: CN)
  Receive Date: 20161031
  Receipt Date: 20161201
  Transmission Date: 20170207
  Serious: Yes (Hospitalization, Other)
  Sender: FDA-Public Use
  Company Number: CN-GLAXOSMITHKLINE-CN2016GSK156399

PATIENT
  Age: 60 Year
  Sex: Male
  Weight: 75 kg

DRUGS (2)
  1. VENTOLIN HFA [Suspect]
     Active Substance: ALBUTEROL SULFATE
     Indication: ASTHMA
     Route: 055
  2. SERETIDE [Suspect]
     Active Substance: FLUTICASONE PROPIONATE\SALMETEROL XINAFOATE
     Indication: ASTHMA
     Dosage: 1 PUFF(S), BID
     Route: 055

REACTIONS (6)
  - Intentional product misuse [Unknown]
  - Lung infection [Recovered/Resolved]
  - Pyrexia [Recovered/Resolved]
  - Overdose [Unknown]
  - Asthma [Recovered/Resolved]
  - Product quality issue [Unknown]

NARRATIVE: CASE EVENT DATE: 2016
